FAERS Safety Report 26115802 (Version 2)
Quarter: 2025Q4

REPORT INFORMATION
  Report Type: Spontaneous
  Country: US (occurrence: US)
  Receive Date: 20251203
  Receipt Date: 20251229
  Transmission Date: 20260118
  Serious: Yes (Death, Hospitalization)
  Sender: TEVA
  Company Number: US-TEVA-VS-3397285

PATIENT

DRUGS (1)
  1. AMLODIPINE [Suspect]
     Active Substance: AMLODIPINE BESYLATE
     Indication: Overdose
     Dosage: 400-800 MG
     Route: 048

REACTIONS (5)
  - Blood lactic acid abnormal [Fatal]
  - Toxicity to various agents [Fatal]
  - Shock [Fatal]
  - Overdose [Fatal]
  - Blood pressure abnormal [Fatal]
